FAERS Safety Report 5848977-1 (Version None)
Quarter: 2008Q3

REPORT INFORMATION
  Report Type: 
  Country: None (occurrence: None)
  Receive Date: 20080818
  Receipt Date: 20080818
  Transmission Date: 20090109
  Serious: Yes (Hospitalization)
  Sender: FDA-Public Use
  Company Number: None

PATIENT
  Sex: Female
  Weight: 53.0709 kg

DRUGS (2)
  1. DIGITEK [Suspect]
     Indication: CARDIAC DISORDER
     Dosage: 250 MCG ONCE A DAY
     Dates: start: 20051011
  2. DIGOXIN [Suspect]
     Indication: CARDIAC DISORDER
     Dosage: 250 MCG ONCE A DAY
     Dates: start: 20080604

REACTIONS (2)
  - DIZZINESS [None]
  - FALL [None]
